FAERS Safety Report 10141759 (Version 1)
Quarter: 2014Q2

REPORT INFORMATION
  Report Type: Spontaneous
  Country: US (occurrence: US)
  Receive Date: 20140429
  Receipt Date: 20140429
  Transmission Date: 20141212
  Serious: No
  Sender: FDA-Public Use
  Company Number: US-PFIZER INC-2014115283

PATIENT
  Age: 58 Year
  Sex: Female

DRUGS (8)
  1. ENBREL [Suspect]
     Indication: RHEUMATOID ARTHRITIS
     Dosage: 25 MG WEEKLY
     Dates: start: 20120905, end: 2012
  2. ENBREL [Suspect]
     Dosage: 50 MG, EVERY FIVE DAYS
     Dates: start: 2012, end: 201211
  3. XELJANZ [Suspect]
     Dosage: UNK
  4. METHOTREXATE [Suspect]
     Dosage: 7.5 MG, WEEKLY
     Route: 065
     Dates: start: 2011
  5. ACTREMA [Suspect]
     Dosage: UNK
  6. REMICADE [Suspect]
     Dosage: UNK
  7. ORENCIA [Suspect]
     Dosage: UNK
     Dates: start: 20140418
  8. PLAQUENIL [Concomitant]
     Dosage: 200 MG, ONCE A DAY
     Dates: start: 2011, end: 201211

REACTIONS (8)
  - Pain [Not Recovered/Not Resolved]
  - Pain in extremity [Not Recovered/Not Resolved]
  - Musculoskeletal pain [Not Recovered/Not Resolved]
  - Musculoskeletal stiffness [Not Recovered/Not Resolved]
  - Inflammation [Not Recovered/Not Resolved]
  - Arthralgia [Not Recovered/Not Resolved]
  - Nausea [Not Recovered/Not Resolved]
  - Memory impairment [Not Recovered/Not Resolved]
